FAERS Safety Report 9501258 (Version 3)
Quarter: 2013Q4

REPORT INFORMATION
  Report Type: Spontaneous
  Country: US (occurrence: US)
  Receive Date: 20130905
  Receipt Date: 20131105
  Transmission Date: 20140711
  Serious: Yes (Hospitalization)
  Sender: FDA-Public Use
  Company Number: US-MPIJNJ-2013MPI000187

PATIENT
  Age: 49 Year
  Sex: Female

DRUGS (1)
  1. VELCADE [Suspect]
     Indication: AMYLOIDOSIS
     Dosage: 2 MG, ON DAYS 1, 4, 8 AND 11
     Route: 058
     Dates: start: 20130813, end: 20130816

REACTIONS (3)
  - Nephrotic syndrome [Recovered/Resolved with Sequelae]
  - Amyloidosis [Recovered/Resolved with Sequelae]
  - Off label use [Unknown]
